FAERS Safety Report 5777339-0 (Version None)
Quarter: 2008Q2

REPORT INFORMATION
  Report Type: 
  Country: None (occurrence: None)
  Receive Date: 20080618
  Receipt Date: 20080610
  Transmission Date: 20081010
  Serious: Yes (Hospitalization)
  Sender: FDA-Public Use
  Company Number: PHHY2008GB10632

PATIENT
  Age: 74 Year
  Sex: Male

DRUGS (3)
  1. GLIVEC [Suspect]
     Indication: CHRONIC MYELOID LEUKAEMIA
     Dosage: 400 MG PER DAY
     Dates: start: 20050915
  2. HYDROXYUREA [Suspect]
     Dosage: UNK
     Dates: start: 20040914, end: 20041223
  3. HYDROXYUREA [Suspect]
     Dosage: UNK
     Dates: start: 20050413, end: 20050915

REACTIONS (1)
  - ANKLE FRACTURE [None]
